FAERS Safety Report 13166539 (Version 1)
Quarter: 2017Q1

REPORT INFORMATION
  Report Type: Spontaneous
  Country: US (occurrence: US)
  Receive Date: 20170126
  Receipt Date: 20170126
  Transmission Date: 20170428
  Serious: Yes (Other)
  Sender: FDA-Public Use
  Company Number: None

PATIENT
  Age: 60 Year
  Sex: Female
  Weight: 68.4 kg

DRUGS (1)
  1. CLIMARA [Suspect]
     Active Substance: ESTRADIOL
     Indication: ATROPHIC VULVOVAGINITIS
     Dates: start: 20170113, end: 20170124

REACTIONS (3)
  - Application site irritation [None]
  - Therapy non-responder [None]
  - Product adhesion issue [None]

NARRATIVE: CASE EVENT DATE: 20170124
